FAERS Safety Report 16198051 (Version 1)
Quarter: 2019Q2

REPORT INFORMATION
  Report Type: Spontaneous
  Country: IT (occurrence: IT)
  Receive Date: 20190415
  Receipt Date: 20190415
  Transmission Date: 20190711
  Serious: Yes (Disabling)
  Sender: FDA-Public Use
  Company Number: IT-TEVA-2019-IT-1037399

PATIENT
  Age: 80 Year
  Sex: Female

DRUGS (1)
  1. ALENDRONATE SODIUM. [Suspect]
     Active Substance: ALENDRONATE SODIUM
     Route: 048
     Dates: start: 20070101, end: 20140101

REACTIONS (2)
  - Swelling [Not Recovered/Not Resolved]
  - Abscess oral [Not Recovered/Not Resolved]

NARRATIVE: CASE EVENT DATE: 20170101
